FAERS Safety Report 5009361-6 (Version None)
Quarter: 2006Q2

REPORT INFORMATION
  Report Type: 
  Country: None (occurrence: None)
  Receive Date: 20060524
  Receipt Date: 20051122
  Transmission Date: 20061013
  Serious: Yes (Hospitalization)
  Sender: FDA-Public Use
  Company Number: HQWYE725829NOV05

PATIENT
  Sex: Female

DRUGS (8)
  1. ENBREL [Suspect]
     Indication: RHEUMATOID ARTHRITIS
     Route: 058
     Dates: start: 20050908, end: 20051114
  2. RHEUMATREX [Concomitant]
     Dosage: UNKNOWN
     Dates: start: 20001101, end: 20051101
  3. PREDONINE [Concomitant]
     Route: 048
     Dates: start: 20001101, end: 20051101
  4. PREDNISOLONE [Concomitant]
     Route: 048
     Dates: start: 20001101, end: 20051101
  5. FOLIAMIN [Concomitant]
     Route: 048
     Dates: start: 20001101, end: 20051101
  6. ENDOXAN [Concomitant]
     Route: 048
     Dates: start: 20050501, end: 20051101
  7. VOLTAREN [Concomitant]
     Route: 048
     Dates: start: 20040101, end: 20051101
  8. LIPITOR [Concomitant]
     Route: 048
     Dates: start: 20011101, end: 20051101

REACTIONS (7)
  - ABSCESS [None]
  - BLOOD ALKALINE PHOSPHATASE INCREASED [None]
  - DIPLEGIA [None]
  - GAMMA-GLUTAMYLTRANSFERASE INCREASED [None]
  - PAIN IN EXTREMITY [None]
  - PELVIC ABSCESS [None]
  - STAPHYLOCOCCAL INFECTION [None]
